FAERS Safety Report 9697433 (Version 1)
Quarter: 2013Q4

REPORT INFORMATION
  Report Type: Spontaneous
  Country: US (occurrence: None)
  Receive Date: 20131119
  Receipt Date: 20131119
  Transmission Date: 20140711
  Serious: Yes (Other)
  Sender: FDA-Public Use
  Company Number: None

PATIENT
  Age: 62 Year
  Sex: Male
  Weight: 136.08 kg

DRUGS (1)
  1. FENTANYL [Suspect]
     Indication: PAIN
     Dosage: 1 PATCH  APPLIED AS MEDICATED PATCH TO SKIN
     Route: 062
     Dates: start: 20111101

REACTIONS (2)
  - Product quality issue [None]
  - Product adhesion issue [None]
